FAERS Safety Report 8907103 (Version 3)
Quarter: 2013Q1

REPORT INFORMATION
  Report Type: Spontaneous
  Country: US (occurrence: US)
  Receive Date: 20121114
  Receipt Date: 20130128
  Transmission Date: 20140127
  Serious: No
  Sender: FDA-Public Use
  Company Number: US-009507513-1211USA005558

PATIENT
  Sex: Female

DRUGS (3)
  1. PEG-INTRON [Suspect]
     Indication: HEPATITIS C
     Dosage: UNK
     Dates: start: 20121105
  2. RIBAVIRIN [Suspect]
     Indication: HEPATITIS C
     Dosage: 4 PILLS, UNK
     Dates: start: 20121106
  3. RIBAVIRIN [Suspect]
     Dosage: 2 PILLS UNK

REACTIONS (9)
  - Vomiting [Unknown]
  - Chills [Unknown]
  - Asthenia [Unknown]
  - Anaemia [Unknown]
  - Asthenia [Unknown]
  - Oropharyngeal pain [Unknown]
  - Anaemia [Unknown]
  - Asthenia [Unknown]
  - Fatigue [Unknown]
